FAERS Safety Report 8599651-2 (Version None)
Quarter: 2012Q3

REPORT INFORMATION
  Report Type: 
  Country: None (occurrence: None)
  Receive Date: 20120802
  Receipt Date: 20120719
  Transmission Date: 20120928
  Serious: Yes (Other)
  Sender: FDA-Public Use
  Company Number: FK201202047

PATIENT
  Age: 14 Year
  Sex: Male
  Weight: 61 kg

DRUGS (3)
  1. SODIUM CHLORIDE [Concomitant]
  2. DIMETHINENE [Suspect]
     Indication: PRURITUS
     Dosage: 1 MG, INTRAVENOUS  (NOT OTHERWISE SPECIFIED)
     Route: 042
  3. VANCOMYCIN HCL [Suspect]
     Indication: ALPHA HAEMOLYTIC STREPTOCOCCAL INFECTION
     Dosage: 5 MG/ML, FOUR TIMES A DAY/INFUSED OVER 60 MINUTES, INTRAVENOUS (NOT OTHERWISE SPECIFIED)
     Route: 042

REACTIONS (1)
  - RED MAN SYNDROME [None]
